FAERS Safety Report 9325856 (Version 1)
Quarter: 2013Q2

REPORT INFORMATION
  Report Type: Spontaneous
  Country: US (occurrence: US)
  Receive Date: 20130604
  Receipt Date: 20130604
  Transmission Date: 20140414
  Serious: Yes (Hospitalization, Other)
  Sender: FDA-Public Use
  Company Number: US-PFIZER INC-2013168505

PATIENT
  Age: 53 Year
  Sex: Female
  Weight: 82.99 kg

DRUGS (1)
  1. LYRICA [Suspect]
     Indication: OCCIPITAL NEURALGIA
     Dosage: UNK, 2X/DAY

REACTIONS (2)
  - Off label use [Unknown]
  - Intervertebral disc disorder [Unknown]
